FAERS Safety Report 18886602 (Version 1)
Quarter: 2021Q1

REPORT INFORMATION
  Report Type: Spontaneous
  Country: US (occurrence: US)
  Receive Date: 20210212
  Receipt Date: 20210212
  Transmission Date: 20210420
  Serious: Yes (Hospitalization, Other)
  Sender: FDA-Public Use
  Company Number: US-BRISTOL-MYERS SQUIBB COMPANY-BMS-2021-014064

PATIENT
  Sex: Female
  Weight: 76.19 kg

DRUGS (1)
  1. WARFARIN SODIUM. [Suspect]
     Active Substance: WARFARIN SODIUM
     Indication: PRODUCT USED FOR UNKNOWN INDICATION
     Dosage: UNK
     Route: 065

REACTIONS (5)
  - Fall [Unknown]
  - Epistaxis [Recovered/Resolved]
  - Hip fracture [Unknown]
  - Musculoskeletal discomfort [Unknown]
  - Skin discolouration [Unknown]

NARRATIVE: CASE EVENT DATE: 2017
